FAERS Safety Report 7603355-X (Version None)
Quarter: 2011Q3

REPORT INFORMATION
  Report Type: 
  Country: None (occurrence: None)
  Receive Date: 20110712
  Receipt Date: 20110703
  Transmission Date: 20111222
  Serious: Yes (Hospitalization)
  Sender: FDA-Public Use
  Company Number: PHHY2010CA88374

PATIENT
  Sex: Female

DRUGS (1)
  1. RIVASTIGMINE [Suspect]
     Indication: CONVULSION
     Dosage: 4.6 MG, (PATCH 5)
     Route: 062
     Dates: start: 20090913, end: 20100216

REACTIONS (1)
  - BLADDER CANCER [None]
